FAERS Safety Report 21458973 (Version 1)
Quarter: 2022Q4

REPORT INFORMATION
  Report Type: Spontaneous
  Country: FR (occurrence: FR)
  Receive Date: 20221014
  Receipt Date: 20221014
  Transmission Date: 20230113
  Serious: Yes (Death, Other)
  Sender: FDA-Public Use
  Company Number: None

PATIENT
  Age: 6 Year
  Sex: Male
  Weight: 27 kg

DRUGS (4)
  1. DASATINIB [Suspect]
     Active Substance: DASATINIB
     Indication: Acute lymphocytic leukaemia
     Route: 048
     Dates: start: 20220822
  2. METHOTREXATE [Suspect]
     Active Substance: METHOTREXATE
     Indication: Product used for unknown indication
     Route: 042
     Dates: start: 20220820
  3. VINCRISTINE [Suspect]
     Active Substance: VINCRISTINE
     Indication: Acute lymphocytic leukaemia
     Dosage: NR
     Route: 042
     Dates: start: 20220828
  4. CYTARABINE [Suspect]
     Active Substance: CYTARABINE
     Indication: Acute lymphocytic leukaemia
     Route: 042
     Dates: start: 20220829

REACTIONS (2)
  - Enterocolitis [Fatal]
  - Hyperammonaemic encephalopathy [Fatal]

NARRATIVE: CASE EVENT DATE: 20220902
